FAERS Safety Report 8970138 (Version 1)
Quarter: 2012Q4

REPORT INFORMATION
  Report Type: 
  Country: CN (occurrence: CN)
  Receive Date: 20121217
  Receipt Date: 20121217
  Transmission Date: 20130627
  Serious: Yes (Other)
  Sender: FDA-Public Use
  Company Number: PHHY2012CN114085

PATIENT
  Sex: Male
  Weight: 1 kg

DRUGS (2)
  1. SEBIVO [Suspect]
     Indication: HEPATITIS B
     Dosage: 600 mg, ONCE/SINGLE
     Route: 048
     Dates: start: 20081214, end: 20100310
  2. SEBIVO [Suspect]
     Indication: HEPATITIS B

REACTIONS (6)
  - Alpha hydroxybutyrate dehydrogenase increased [Recovering/Resolving]
  - Anion gap increased [Recovering/Resolving]
  - Apolipoprotein B increased [Recovering/Resolving]
  - Globulins increased [Recovering/Resolving]
  - Blood lactate dehydrogenase increased [Recovering/Resolving]
  - Blood creatine phosphokinase increased [Recovering/Resolving]
